FAERS Safety Report 19964321 (Version 1)
Quarter: 2021Q4

REPORT INFORMATION
  Report Type: Spontaneous
  Country: JP (occurrence: JP)
  Receive Date: 20211018
  Receipt Date: 20211018
  Transmission Date: 20220303
  Serious: Yes (Other)
  Sender: FDA-Public Use
  Company Number: JP-MEDEXUS PHARMA, INC.-2021MED00269

PATIENT
  Age: 6 Year
  Sex: Male

DRUGS (3)
  1. METHOTREXATE [Suspect]
     Active Substance: METHOTREXATE
     Indication: Acute lymphocytic leukaemia
     Dosage: 2 G/M^2 ONCE EVERY 2 WEEKS FOR 4 INFUSIONS
     Route: 042
  2. MERCAPTOPURINE [Concomitant]
     Active Substance: MERCAPTOPURINE
     Indication: Acute lymphocytic leukaemia
     Route: 048
  3. 5-HT3 SEROTONIN BLOCKERS [Concomitant]
     Indication: Prophylaxis of nausea and vomiting
     Route: 065

REACTIONS (1)
  - Palmar-plantar erythrodysaesthesia syndrome [Recovered/Resolved]
